FAERS Safety Report 6619711-2 (Version None)
Quarter: 2010Q1

REPORT INFORMATION
  Report Type: 
  Country: None (occurrence: None)
  Receive Date: 20100309
  Receipt Date: 20100224
  Transmission Date: 20100710
  Serious: Yes (Hospitalization, Other)
  Sender: FDA-Public Use
  Company Number: PHHY2010GB11881

PATIENT
  Sex: Male

DRUGS (6)
  1. CLOZARIL [Suspect]
     Indication: SCHIZOPHRENIA
     Dosage: 900 MG, UNK
     Route: 048
     Dates: start: 19970421
  2. CLOZARIL [Suspect]
     Dosage: 2 X 900 MG
     Dates: start: 20100201
  3. DIAZEPAM TAB [Concomitant]
     Indication: ANXIETY
     Dosage: 10 MG, UNK
     Route: 048
  4. VENLAFAXINE [Concomitant]
     Indication: DEPRESSION
     Dosage: 225 MG, UNK
  5. RISPERIDONE [Concomitant]
     Dosage: 6 MG, UNK
     Route: 048
  6. LAMOTRIGINE [Concomitant]
     Dosage: 450 MG, UNK
     Route: 048

REACTIONS (4)
  - COMA SCALE ABNORMAL [None]
  - HYPOTONIA [None]
  - OVERDOSE [None]
  - SOMNOLENCE [None]
